FAERS Safety Report 5358377-9 (Version None)
Quarter: 2007Q2

REPORT INFORMATION
  Report Type: 
  Country: None (occurrence: None)
  Receive Date: 20070530
  Receipt Date: 20070207
  Transmission Date: 20071010
  Serious: Yes (Other)
  Sender: FDA-Public Use
  Company Number: US200601000168

PATIENT
  Age: 39 Year
  Sex: Female
  Weight: 122 kg

DRUGS (10)
  1. ZYPREXA [Suspect]
     Indication: MOOD SWINGS
     Dates: start: 20020101
  2. HYDROCHLOROTHIAZIDE W/TRIAMTERENE (HYDROCHLOROTHIAZIDE, TRIAMTERENE) [Concomitant]
  3. PREVACID [Concomitant]
  4. XENICAL [Concomitant]
  5. MULTIVITAMINS PLUS IRON (FERROUS SULFATE, VITAMINS NOS) [Concomitant]
  6. ZANTAC [Concomitant]
  7. CLARINEX [Concomitant]
  8. ACCUPRIL [Concomitant]
  9. TRIAMCINOLONE [Concomitant]
  10. METAMUCIL   /00091301/ (PSYLLIUM HYDROPHILIC MUCILLOID) [Concomitant]

REACTIONS (3)
  - BLOOD CHOLESTEROL INCREASED [None]
  - DIABETES MELLITUS NON-INSULIN-DEPENDENT [None]
  - WEIGHT INCREASED [None]
